FAERS Safety Report 21279271 (Version 2)
Quarter: 2023Q1

REPORT INFORMATION
  Report Type: Report from Study
  Country: GB (occurrence: None)
  Receive Date: 20220901
  Receipt Date: 20230316
  Transmission Date: 20230418
  Serious: Yes (Other)
  Sender: FDA-Public Use
  Company Number: GB-ROCHE-3168571

PATIENT
  Age: 52 Year
  Sex: Male

DRUGS (2)
  1. IPATASERTIB [Suspect]
     Active Substance: IPATASERTIB
     Indication: Hormone-refractory prostate cancer
     Dosage: DATE OF MOST RECENT DOSE PRIOR TO EVENT 16/AUG/2022 AND 17/AUG/2022
     Route: 048
     Dates: start: 20220511
  2. ATEZOLIZUMAB [Suspect]
     Active Substance: ATEZOLIZUMAB
     Indication: Hormone-refractory prostate cancer
     Dosage: DATE OF MOST RECENT DOSE PRIOR TO EVENT 03/AUG/2022 AND 17/AUG/2022
     Route: 041
     Dates: start: 20220511

REACTIONS (1)
  - Facial paralysis [Recovered/Resolved]

NARRATIVE: CASE EVENT DATE: 20220822
